FAERS Safety Report 6821496-1 (Version None)
Quarter: 2010Q2

REPORT INFORMATION
  Report Type: 
  Country: None (occurrence: None)
  Receive Date: 20100630
  Receipt Date: 20100616
  Transmission Date: 20101027
  Serious: Yes (Hospitalization)
  Sender: FDA-Public Use
  Company Number: US-000129

PATIENT
  Sex: Male
  Weight: 74.8435 kg

DRUGS (3)
  1. KUVAN [Suspect]
     Indication: PHENYLKETONURIA
     Dosage: 1500 MG QD, ORAL; ORAL; ORAL
     Route: 048
     Dates: start: 20080101, end: 20080101
  2. KUVAN [Suspect]
     Indication: PHENYLKETONURIA
     Dosage: 1500 MG QD, ORAL; ORAL; ORAL
     Route: 048
     Dates: start: 20100201, end: 20100101
  3. KUVAN [Suspect]
     Indication: PHENYLKETONURIA
     Dosage: 1500 MG QD, ORAL; ORAL; ORAL
     Route: 048
     Dates: start: 20100301, end: 20100401

REACTIONS (33)
  - ASTHENIA [None]
  - ASTHMA [None]
  - BLOOD PRESSURE DIASTOLIC DECREASED [None]
  - BRONCHITIS [None]
  - CHILLS [None]
  - DECREASED APPETITE [None]
  - DEHYDRATION [None]
  - DIARRHOEA [None]
  - DRUG HYPERSENSITIVITY [None]
  - H1N1 INFLUENZA [None]
  - HEADACHE [None]
  - HEREDITARY SPHEROCYTOSIS [None]
  - HYPOTENSION [None]
  - IMMUNE SYSTEM DISORDER [None]
  - INFECTIOUS MONONUCLEOSIS [None]
  - LEUKOCYTOSIS [None]
  - LYMPHADENOPATHY [None]
  - MENINGITIS [None]
  - NASAL CONGESTION [None]
  - NAUSEA [None]
  - OROPHARYNGEAL PAIN [None]
  - PHARYNGITIS BACTERIAL [None]
  - PNEUMONIA [None]
  - RESPIRATORY DISTRESS [None]
  - RESPIRATORY TRACT INFECTION [None]
  - SENSATION OF PRESSURE [None]
  - SINUSITIS [None]
  - SWOLLEN TONGUE [None]
  - TACHYCARDIA [None]
  - TREMOR [None]
  - UPPER RESPIRATORY TRACT INFECTION [None]
  - VOMITING [None]
  - WHEEZING [None]
